FAERS Safety Report 9880287 (Version 1)
Quarter: 2014Q1

REPORT INFORMATION
  Report Type: Spontaneous
  Country: US (occurrence: US)
  Receive Date: 20140207
  Receipt Date: 20140207
  Transmission Date: 20141002
  Serious: Yes (Other)
  Sender: FDA-Public Use
  Company Number: US-ALEXION-A201304828

PATIENT
  Age: 21 Year
  Sex: Male

DRUGS (4)
  1. SOLIRIS 300MG [Suspect]
     Indication: GLOMERULONEPHRITIS
     Dosage: 900 MG, QW
     Route: 042
  2. SOLIRIS 300MG [Suspect]
     Indication: OFF LABEL USE
     Dosage: 1200 MG, Q2W
  3. CIPROFLOXACIN [Concomitant]
     Indication: PROPHYLAXIS
  4. RITUXIMAB [Concomitant]
     Indication: PROTEINURIA
     Dosage: 100 MG,
     Route: 042

REACTIONS (4)
  - Fibrosis [Recovering/Resolving]
  - Proteinuria [Recovering/Resolving]
  - Disease progression [Recovering/Resolving]
  - Off label use [Not Recovered/Not Resolved]
